FAERS Safety Report 4482623-7 (Version None)
Quarter: 2004Q3

REPORT INFORMATION
  Report Type: 
  Country: None (occurrence: None)
  Receive Date: 20040921
  Receipt Date: 20040612
  Transmission Date: 20050211
  Serious: Yes (Death, Hospitalization)
  Sender: FDA-Public Use
  Company Number: 163-20785-04060467

PATIENT
  Age: 23 Year
  Sex: Male
  Weight: 71 kg

DRUGS (4)
  1. THALOMID [Suspect]
     Indication: METASTATIC MALIGNANT MELANOMA
     Dosage: 200 MG, QD, ORAL
     Route: 048
     Dates: start: 20040510, end: 20040516
  2. TEMOZOLOMIDE (TEMOZOLOMIDE) (CAPSULES) [Suspect]
     Indication: METASTATIC MALIGNANT MELANOMA
     Dosage: 75 MG/M2, QD, ORAL
     Route: 048
     Dates: start: 20040510, end: 20040516
  3. DILANTIN [Concomitant]
  4. OXYCONTIN [Concomitant]

REACTIONS (2)
  - DEATH [None]
  - DISEASE PROGRESSION [None]
